FAERS Safety Report 4515153-4 (Version None)
Quarter: 2004Q4

REPORT INFORMATION
  Report Type: 
  Country: None (occurrence: None)
  Receive Date: 20041130
  Receipt Date: 20041130
  Transmission Date: 20050328
  Serious: Yes (Disabling)
  Sender: FDA-Public Use
  Company Number: None

PATIENT
  Age: 6 Year
  Sex: Female
  Weight: 72.5755 kg

DRUGS (1)
  1. MOBIC [Suspect]
     Indication: BACK PAIN
     Dosage: 7.5 MG 1 OR 2 QD  - ORAL
     Route: 048
     Dates: start: 20010101, end: 20030101

REACTIONS (2)
  - CONTUSION [None]
  - PLATELET COUNT DECREASED [None]
